FAERS Safety Report 21103894 (Version 3)
Quarter: 2023Q1

REPORT INFORMATION
  Report Type: Report from Study
  Country: CO (occurrence: CO)
  Receive Date: 20220720
  Receipt Date: 20230106
  Transmission Date: 20230418
  Serious: Yes (Other)
  Sender: FDA-Public Use
  Company Number: CO-NOVARTISPH-NVSC2022CO082770

PATIENT
  Sex: Female

DRUGS (2)
  1. KISQALI [Suspect]
     Active Substance: RIBOCICLIB
     Indication: Breast cancer
     Dosage: 600 MG, QD
     Route: 048
  2. FEMARA [Suspect]
     Active Substance: LETROZOLE
     Indication: Breast cancer
     Dosage: 2.5 MG, QD
     Route: 048

REACTIONS (12)
  - Haemorrhage [Unknown]
  - Scab [Unknown]
  - Skin disorder [Unknown]
  - Hypersensitivity [Unknown]
  - Nail disorder [Unknown]
  - Anxiety [Unknown]
  - Contusion [Unknown]
  - Skin irritation [Unknown]
  - Skin hyperpigmentation [Unknown]
  - Alopecia [Unknown]
  - Pruritus [Unknown]
  - Product dose omission in error [Unknown]
